FAERS Safety Report 7232634-3 (Version None)
Quarter: 2011Q1

REPORT INFORMATION
  Report Type: 
  Country: None (occurrence: None)
  Receive Date: 20110106
  Receipt Date: 20101221
  Transmission Date: 20110831
  Serious: No
  Sender: FDA-Public Use
  Company Number: 2010-01059

PATIENT
  Age: 29 Year
  Sex: Male
  Weight: 77.1115 kg

DRUGS (1)
  1. ZICAM COLD REMEDY CHEWABLES [Suspect]
     Dosage: Q3 HOURS X 4 DAYS
     Dates: start: 20101218, end: 20101221

REACTIONS (2)
  - AGEUSIA [None]
  - ANOSMIA [None]
